FAERS Safety Report 6901818-3 (Version None)
Quarter: 2010Q3

REPORT INFORMATION
  Report Type: 
  Country: None (occurrence: None)
  Receive Date: 20100803
  Receipt Date: 20080321
  Transmission Date: 20110219
  Serious: Yes (Other)
  Sender: FDA-Public Use
  Company Number: US-PFIZER INC-2008026329

PATIENT
  Age: 71 Year
  Sex: Female

DRUGS (9)
  1. LYRICA [Suspect]
     Indication: PARAESTHESIA
  2. CARDIZEM [Concomitant]
  3. POTASSIUM [Concomitant]
  4. NEXIUM [Concomitant]
  5. AVAPRO [Concomitant]
  6. INDAPAMIDE [Concomitant]
  7. ACETYLSALICYLIC ACID SRT [Concomitant]
  8. XALATAN [Concomitant]
  9. ADVIL LIQUI-GELS [Concomitant]

REACTIONS (4)
  - DYSPNOEA [None]
  - SOMNOLENCE [None]
  - SWELLING [None]
  - WEIGHT INCREASED [None]
